FAERS Safety Report 22376962 (Version 1)
Quarter: 2023Q2

REPORT INFORMATION
  Report Type: Spontaneous
  Country: US (occurrence: US)
  Receive Date: 20230529
  Receipt Date: 20230529
  Transmission Date: 20230721
  Serious: Yes (Death, Life-Threatening, Other)
  Sender: FDA-Public Use
  Company Number: US-LUPIN PHARMACEUTICALS INC.-2023-04011

PATIENT
  Age: 61 Year
  Sex: Female

DRUGS (7)
  1. AMLODIPINE [Suspect]
     Active Substance: AMLODIPINE BESYLATE
     Indication: Product used for unknown indication
     Dosage: 900 MG
     Route: 048
  2. SIMVASTATIN [Suspect]
     Active Substance: SIMVASTATIN
     Indication: Product used for unknown indication
     Dosage: 1600 MG
     Route: 048
  3. CALCIUM [Suspect]
     Active Substance: CALCIUM
     Indication: Respiratory failure
     Dosage: UNK
     Route: 065
  4. ATENOLOL [Suspect]
     Active Substance: ATENOLOL
     Indication: Product used for unknown indication
     Dosage: 2250 MG
     Route: 048
  5. HYDROCHLOROTHIAZIDE [Suspect]
     Active Substance: HYDROCHLOROTHIAZIDE
     Indication: Product used for unknown indication
     Dosage: 1025 MG
     Route: 048
  6. ATROPINE [Suspect]
     Active Substance: ATROPINE
     Indication: Respiratory failure
     Dosage: UNK
     Route: 065
  7. GLUCAGON [Suspect]
     Active Substance: GLUCAGON
     Indication: Respiratory failure
     Dosage: UNK
     Route: 065

REACTIONS (7)
  - Thrombosis [Fatal]
  - Bradycardia [Not Recovered/Not Resolved]
  - Respiratory failure [Not Recovered/Not Resolved]
  - Hypotension [Not Recovered/Not Resolved]
  - Suicide attempt [Unknown]
  - Intentional overdose [Unknown]
  - Off label use [Unknown]
